FAERS Safety Report 7026932-6 (Version None)
Quarter: 2010Q4

REPORT INFORMATION
  Report Type: 
  Country: None (occurrence: None)
  Receive Date: 20101004
  Receipt Date: 20100923
  Transmission Date: 20110411
  Serious: Yes (Hospitalization)
  Sender: FDA-Public Use
  Company Number: B0675946A

PATIENT
  Sex: Female

DRUGS (10)
  1. ARIXTRA [Suspect]
     Indication: PRODUCT USED FOR UNKNOWN INDICATION
     Dosage: 7.5MG PER DAY
     Route: 058
     Dates: start: 20100512, end: 20100519
  2. TAVANIC [Suspect]
     Dosage: 500MG TWICE PER DAY
     Route: 048
     Dates: start: 20100512, end: 20100524
  3. PLAVIX [Suspect]
     Dosage: 75MG PER DAY
     Route: 048
     Dates: start: 20100516, end: 20100523
  4. AUGMENTIN '125' [Concomitant]
     Dosage: 3G PER DAY
     Route: 048
     Dates: start: 20100524, end: 20100531
  5. KARDEGIC [Concomitant]
     Dosage: 75MG PER DAY
     Route: 048
     Dates: start: 20100512, end: 20100522
  6. NEXIUM [Concomitant]
     Dosage: 20MG PER DAY
     Route: 048
     Dates: start: 20100519, end: 20100526
  7. ACTONEL [Concomitant]
     Dosage: 1UNIT WEEKLY
     Route: 048
     Dates: start: 20100519, end: 20100601
  8. CIFLOX [Concomitant]
     Dosage: 500MG TWICE PER DAY
     Route: 048
     Dates: start: 20100524, end: 20100603
  9. LEVOTHYROXINE SODIUM [Concomitant]
     Dosage: 25MCG PER DAY
     Route: 048
     Dates: start: 20100524, end: 20100531
  10. ROCEPHIN [Concomitant]
     Dosage: 1G PER DAY
     Route: 042
     Dates: start: 20100512, end: 20100519

REACTIONS (1)
  - NEUTROPENIA [None]
